FAERS Safety Report 7587530-9 (Version None)
Quarter: 2011Q3

REPORT INFORMATION
  Report Type: 
  Country: None (occurrence: None)
  Receive Date: 20110704
  Receipt Date: 20110620
  Transmission Date: 20111222
  Serious: Yes (Hospitalization)
  Sender: FDA-Public Use
  Company Number: PHHY2011CA56041

PATIENT
  Age: 81 Year
  Sex: Male

DRUGS (6)
  1. ENALAPRIL MALEATE [Concomitant]
     Dosage: 10 MG, UNK
  2. DIGOXIN [Concomitant]
     Dosage: 0.125 MG, DAILY
  3. ACETAMINOPHEN [Suspect]
     Indication: MUSCULOSKELETAL PAIN
     Dosage: 1000 MG PER DAY
  4. DICLOFENAC SODIUM [Suspect]
     Indication: MUSCULOSKELETAL PAIN
     Dosage: 150 MG, QD
  5. FUROSEMIDE [Concomitant]
     Dosage: 40 MG, UNK
     Route: 048
  6. SPIRONOLACTONE [Concomitant]
     Dosage: 50 MG, UNK

REACTIONS (12)
  - HEART SOUNDS ABNORMAL [None]
  - VENTRICULAR TACHYCARDIA [None]
  - OEDEMA PERIPHERAL [None]
  - BLOOD PRESSURE INCREASED [None]
  - OXYGEN SATURATION DECREASED [None]
  - HEART RATE INCREASED [None]
  - RESPIRATORY RATE INCREASED [None]
  - RENAL IMPAIRMENT [None]
  - CONFUSIONAL STATE [None]
  - SINUS ARREST [None]
  - METABOLIC ACIDOSIS [None]
  - HYPERKALAEMIA [None]
